FAERS Safety Report 8610547-X (Version None)
Quarter: 2012Q3

REPORT INFORMATION
  Report Type: 
  Country: None (occurrence: None)
  Receive Date: 20120822
  Receipt Date: 20120723
  Transmission Date: 20120928
  Serious: Yes (Other)
  Sender: FDA-Public Use
  Company Number: US-009507513-1207USA010509

PATIENT

DRUGS (2)
  1. ZOCOR [Suspect]
  2. NIASPAN [Suspect]

REACTIONS (3)
  - SEVERE ACUTE RESPIRATORY SYNDROME [None]
  - PNEUMONIA [None]
  - CONVULSION [None]
